FAERS Safety Report 6826301-5 (Version None)
Quarter: 2010Q3

REPORT INFORMATION
  Report Type: 
  Country: None (occurrence: None)
  Receive Date: 20100709
  Receipt Date: 20100701
  Transmission Date: 20110219
  Serious: Yes (Life-Threatening, Hospitalization)
  Sender: FDA-Public Use
  Company Number: PHHY2010US36390

PATIENT
  Sex: Female

DRUGS (11)
  1. EXJADE [Suspect]
     Indication: IRON DEFICIENCY ANAEMIA
     Dosage: 2500 MG, QD
     Route: 048
     Dates: start: 20100325, end: 20100603
  2. EXJADE [Suspect]
     Indication: IRON OVERLOAD
     Dosage: 20 MG PER KG
     Dates: start: 20100402, end: 20100503
  3. ALLOPURINOL [Concomitant]
     Indication: BLOOD URIC ACID INCREASED
     Dosage: 250 MG, BID
  4. BUMEX [Concomitant]
     Dosage: 2 MG, BID AS NEEDED
  5. CYMBALTA [Concomitant]
     Dosage: ONCE DAILY
  6. FOLIC ACID [Concomitant]
     Dosage: 1MG/D
  7. GLYBURIDE [Concomitant]
     Indication: DIABETES MELLITUS
     Dosage: 5 MG, BID
  8. HYDREA [Concomitant]
     Indication: SICKLE CELL ANAEMIA
     Dosage: 500 MG, BID
  9. IMDUR [Concomitant]
     Dosage: 30 MG DAILY
     Route: 048
  10. MORPHINE [Concomitant]
     Dosage: 60 MG AT HS (BEDTIME)
  11. ROXANOL [Concomitant]
     Dosage: 20 MG, PRN

REACTIONS (2)
  - CEREBROVASCULAR ACCIDENT [None]
  - RENAL FAILURE ACUTE [None]
